FAERS Safety Report 6501092-6 (Version None)
Quarter: 2009Q4

REPORT INFORMATION
  Report Type: 
  Country: None (occurrence: None)
  Receive Date: 20091216
  Receipt Date: 20090710
  Transmission Date: 20100525
  Serious: No
  Sender: FDA-Public Use
  Company Number: A0796352A

PATIENT
  Age: 73 Year
  Sex: Female

DRUGS (2)
  1. COMMIT [Suspect]
  2. NICORETTE (MINT) [Suspect]

REACTIONS (6)
  - CHEST DISCOMFORT [None]
  - COUGH [None]
  - DRUG ADMINISTRATION ERROR [None]
  - DYSPNOEA [None]
  - FATIGUE [None]
  - RESPIRATORY DISORDER [None]
